FAERS Safety Report 4745208-0 (Version None)
Quarter: 2005Q3

REPORT INFORMATION
  Report Type: 
  Country: None (occurrence: None)
  Receive Date: 20050812
  Receipt Date: 20050804
  Transmission Date: 20060218
  Serious: Yes (Hospitalization)
  Sender: FDA-Public Use
  Company Number: 200510530BFR

PATIENT
  Age: 35 Year
  Sex: Male

DRUGS (11)
  1. CIPROFLOXACIN [Suspect]
     Indication: SINUSITIS
     Dosage: ORAL
     Route: 048
  2. CYTARABINE [Suspect]
     Indication: LYMPHOMA
     Dosage: INTRAVENOUS
     Route: 042
     Dates: end: 20050330
  3. CISPLATIN [Suspect]
     Indication: LYMPHOMA
     Dosage: INTRAVENOUS
     Route: 042
     Dates: end: 20050330
  4. VINCRISTINE [Suspect]
     Indication: LYMPHOMA
     Dosage: INTRAVENOUS
     Route: 042
     Dates: start: 20050330
  5. FLAGYL [Suspect]
     Dosage: INTRAVENOUS
     Route: 042
     Dates: start: 20050221, end: 20050312
  6. IDARUBICINE (IDARUBICIN) [Suspect]
     Indication: LYMPHOMA
     Dosage: INTRAVENOUS
     Route: 042
     Dates: start: 20050330
  7. DEXAMETHASONE [Suspect]
     Dates: start: 20050221
  8. METHYLPREDNISOLONE [Suspect]
  9. CEFPODOXIME PROXETIL [Suspect]
     Indication: SINUSITIS
     Dates: end: 20050326
  10. FLUCONAZOLE [Suspect]
     Indication: SINUSITIS
     Dates: end: 20050326
  11. TAZOCILLINE [Suspect]
     Dates: start: 20050326

REACTIONS (1)
  - RETINOPATHY [None]
